FAERS Safety Report 7874577-8 (Version None)
Quarter: 2011Q4

REPORT INFORMATION
  Report Type: 
  Country: None (occurrence: None)
  Receive Date: 20111031
  Receipt Date: 20111024
  Transmission Date: 20120403
  Serious: Yes (Other)
  Sender: FDA-Public Use
  Company Number: BR-PFIZER INC-2011247554

PATIENT
  Age: 59 Year
  Sex: Male
  Weight: 90 kg

DRUGS (4)
  1. ARCOXIA [Concomitant]
     Indication: TENDONITIS
     Dosage: UNKNOWN DOSE, ONE TABLET PER DAY FOR 7 DAYS
     Dates: start: 20111011
  2. VIAGRA [Suspect]
     Indication: SEXUAL DYSFUNCTION
     Dosage: 50 MG, ONE TABLET AS NEEDED
     Route: 048
     Dates: start: 20111013
  3. ATENOLOL [Concomitant]
     Indication: HYPERTENSION
     Dosage: 25 MG, 1X/DAY
     Dates: start: 20060101
  4. ARCOXIA [Concomitant]
     Indication: PLANTAR FASCIITIS

REACTIONS (1)
  - HAEMATURIA [None]
